FAERS Safety Report 19839436 (Version 1)
Quarter: 2021Q3

REPORT INFORMATION
  Report Type: Spontaneous
  Country: US (occurrence: US)
  Receive Date: 20210915
  Receipt Date: 20210915
  Transmission Date: 20211014
  Serious: Yes (Disabling)
  Sender: FDA-Public Use
  Company Number: None

PATIENT
  Age: 20 Year
  Sex: Female
  Weight: 58.5 kg

DRUGS (4)
  1. TRIAMCINOLONE [Suspect]
     Active Substance: TRIAMCINOLONE
  2. DESONIDE. [Suspect]
     Active Substance: DESONIDE
  3. MULTIVITAMINS [Concomitant]
     Active Substance: VITAMINS
  4. HYDROCORTISONE. [Suspect]
     Active Substance: HYDROCORTISONE
     Indication: ECZEMA
     Dates: start: 20161115, end: 20210217

REACTIONS (17)
  - Product prescribing issue [None]
  - Steroid withdrawal syndrome [None]
  - Wound [None]
  - Skin burning sensation [None]
  - Skin weeping [None]
  - Erythema [None]
  - Loss of therapeutic response [None]
  - Temperature regulation disorder [None]
  - Weight decreased [None]
  - Insomnia [None]
  - Bedridden [None]
  - Rash [None]
  - Urticaria [None]
  - Condition aggravated [None]
  - Skin exfoliation [None]
  - Alopecia [None]
  - Neuralgia [None]

NARRATIVE: CASE EVENT DATE: 20210217
